FAERS Safety Report 19889732 (Version 1)
Quarter: 2021Q3

REPORT INFORMATION
  Report Type: Spontaneous
  Country: US (occurrence: US)
  Receive Date: 20210927
  Receipt Date: 20210927
  Transmission Date: 20211014
  Serious: Yes (Death, Other)
  Sender: FDA-Public Use
  Company Number: US-VELOXIS PHARMACEUTICALS-2021VELUS-000562

PATIENT
  Age: 70 Year
  Sex: Male

DRUGS (1)
  1. ENVARSUS XR [Suspect]
     Active Substance: TACROLIMUS
     Indication: PROPHYLAXIS AGAINST TRANSPLANT REJECTION
     Dosage: 1 MILLIGRAM, EVERY MORNING
     Route: 048
     Dates: start: 20191216

REACTIONS (2)
  - Death [Fatal]
  - Prophylaxis against transplant rejection [Unknown]

NARRATIVE: CASE EVENT DATE: 20210420
